FAERS Safety Report 17022784 (Version 1)
Quarter: 2019Q4

REPORT INFORMATION
  Report Type: Report from Study
  Country: US (occurrence: US)
  Receive Date: 20191112
  Receipt Date: 20191112
  Transmission Date: 20200122
  Serious: Yes (Death, Other)
  Sender: FDA-Public Use
  Company Number: NVSC2019US023177

PATIENT
  Age: 52 Year
  Sex: Male

DRUGS (1)
  1. TRAMETINIB [Suspect]
     Active Substance: TRAMETINIB
     Indication: COLON CANCER METASTATIC
     Dosage: UNK
     Route: 048
     Dates: end: 20180725

REACTIONS (3)
  - Pancreatitis [Not Recovered/Not Resolved]
  - Death [Fatal]
  - Dermatitis acneiform [Not Recovered/Not Resolved]

NARRATIVE: CASE EVENT DATE: 20180718
